FAERS Safety Report 10452078 (Version 1)
Quarter: 2014Q3

REPORT INFORMATION
  Report Type: Spontaneous
  Country: US (occurrence: None)
  Receive Date: 20140910
  Receipt Date: 20140910
  Transmission Date: 20150326
  Serious: Yes (Hospitalization, Other)
  Sender: FDA-Public Use
  Company Number: PR-AE14-001024

PATIENT
  Sex: Female

DRUGS (1)
  1. GOODYS EXTRA STRENGTH [Suspect]
     Active Substance: ACETAMINOPHEN\ASPIRIN\CAFFEINE
     Indication: ANALGESIC THERAPY
     Route: 048

REACTIONS (6)
  - Perforated ulcer [None]
  - Haemorrhage [None]
  - Incorrect drug administration duration [None]
  - Pain [None]
  - Abdominal infection [None]
  - Abdominal pain [None]
